FAERS Safety Report 13981649 (Version 1)
Quarter: 2017Q3

REPORT INFORMATION
  Report Type: Spontaneous
  Country: US (occurrence: US)
  Receive Date: 20170918
  Receipt Date: 20170918
  Transmission Date: 20171128
  Serious: No
  Sender: FDA-Public Use
  Company Number: US-BION-004910

PATIENT
  Age: 46 Year
  Sex: Female
  Weight: 55.79 kg

DRUGS (1)
  1. CETIRIZINE/CETIRIZINE HYDROCHLORIDE [Suspect]
     Active Substance: CETIRIZINE HYDROCHLORIDE
     Indication: SINUS DISORDER
     Dosage: 1 DF TAKEN ONCE
     Route: 048
     Dates: start: 20160826, end: 20160826

REACTIONS (2)
  - Feeling abnormal [Unknown]
  - Vomiting [Unknown]
